FAERS Safety Report 15523872 (Version 1)
Quarter: 2018Q4

REPORT INFORMATION
  Report Type: Spontaneous
  Country: US (occurrence: US)
  Receive Date: 20181018
  Receipt Date: 20181018
  Transmission Date: 20190205
  Serious: No
  Sender: FDA-Public Use
  Company Number: US-JNJFOC-20180930828

PATIENT
  Sex: Female
  Weight: 3.59 kg

DRUGS (2)
  1. INFANTS TYLENOL [Suspect]
     Active Substance: ACETAMINOPHEN
     Indication: CONSTIPATION
     Route: 048
  2. INFANTS TYLENOL [Suspect]
     Active Substance: ACETAMINOPHEN
     Indication: ABDOMINAL PAIN UPPER
     Route: 048

REACTIONS (2)
  - Product use in unapproved indication [Unknown]
  - Off label use [Unknown]
